FAERS Safety Report 5494556-8 (Version None)
Quarter: 2007Q4

REPORT INFORMATION
  Report Type: 
  Country: None (occurrence: None)
  Receive Date: 20071022
  Receipt Date: 20071005
  Transmission Date: 20080405
  Serious: Yes (Death)
  Sender: FDA-Public Use
  Company Number: 8027402

PATIENT
  Sex: Male

DRUGS (3)
  1. KEPPRA [Suspect]
     Dosage: 750 MG 2/D
     Dates: start: 20050101
  2. VPA [Concomitant]
  3. OXCARBAZEPINE [Concomitant]

REACTIONS (1)
  - DEATH [None]
